FAERS Safety Report 4599489-7 (Version None)
Quarter: 2005Q1

REPORT INFORMATION
  Report Type: 
  Country: None (occurrence: None)
  Receive Date: 20050303
  Receipt Date: 20050215
  Transmission Date: 20050727
  Serious: Yes (Hospitalization)
  Sender: FDA-Public Use
  Company Number: USA041286850

PATIENT
  Age: 1 Day
  Sex: Male
  Weight: 3 kg

DRUGS (3)
  1. HUMALOG [Suspect]
  2. LANTUS [Concomitant]
  3. PRENATAL VITAMINS [Concomitant]

REACTIONS (8)
  - ASTHMA [None]
  - DRUG EXPOSURE DURING PREGNANCY [None]
  - DRUG EXPOSURE VIA BREAST MILK [None]
  - HYPOGLYCAEMIA NEONATAL [None]
  - JAUNDICE NEONATAL [None]
  - MEDICAL DEVICE COMPLICATION [None]
  - PREMATURE BABY [None]
  - SEASONAL ALLERGY [None]
